FAERS Safety Report 5295157-7 (Version None)
Quarter: 2007Q2

REPORT INFORMATION
  Report Type: 
  Country: None (occurrence: None)
  Receive Date: 20070412
  Receipt Date: 20070410
  Transmission Date: 20071010
  Serious: Yes (Hospitalization)
  Sender: FDA-Public Use
  Company Number: DE-BOEHRINGER INGELHEIM PHARMACEUTICALS, INC.-2007-DE-02057DE

PATIENT
  Sex: Female
  Weight: 60 kg

DRUGS (5)
  1. SIFROL 0,18 MG [Suspect]
     Route: 048
  2. AMITRIPTLINE HCL [Suspect]
     Route: 048
  3. AMPHETAMINE SULFATE [Suspect]
     Route: 048
  4. MST 10 [Suspect]
     Route: 048
  5. TRAMAL 50 [Suspect]
     Route: 048

REACTIONS (3)
  - DRUG ABUSER [None]
  - SOPOR [None]
  - SUICIDE ATTEMPT [None]
